FAERS Safety Report 9887817 (Version 2)
Quarter: 2014Q1

REPORT INFORMATION
  Report Type: Report from Study
  Country: CA (occurrence: CA)
  Receive Date: 20140211
  Receipt Date: 20140211
  Transmission Date: 20141002
  Serious: Yes (Other)
  Sender: FDA-Public Use
  Company Number: CA-SANOFI-AVENTIS-2012SA025420

PATIENT
  Age: 55 Year
  Sex: Female
  Weight: 92.5 kg

DRUGS (24)
  1. TERIFLUNOMIDE [Suspect]
     Indication: MULTIPLE SCLEROSIS RELAPSE
     Dosage: DOSE:1 UNIT(S)
     Route: 048
     Dates: start: 20021216, end: 20051010
  2. TYLENOL [Concomitant]
     Indication: ARTHRALGIA
     Dosage: DOSE:1 UNIT(S)
     Route: 065
     Dates: start: 1999
  3. IMOVANE [Concomitant]
     Indication: INSOMNIA
     Route: 065
     Dates: start: 2000
  4. HYDROCHLOROTHIAZIDE [Concomitant]
     Indication: HYPERTENSION
     Route: 065
     Dates: start: 200103
  5. ATENOLOL [Concomitant]
     Indication: HYPERTENSION
     Route: 065
     Dates: start: 200103
  6. PANTOPRAZOLE [Concomitant]
     Indication: PROPHYLAXIS
     Route: 065
     Dates: start: 200103
  7. PANTOPRAZOLE [Concomitant]
     Indication: GASTRIC DISORDER
     Route: 065
     Dates: start: 200103
  8. RIZATRIPTAN [Concomitant]
     Indication: HEADACHE
     Route: 065
     Dates: start: 200110
  9. ENDOCET [Concomitant]
     Indication: HEADACHE
     Dosage: DOSE:1 UNIT(S)
     Route: 065
     Dates: start: 200209
  10. ZOLOFT [Concomitant]
     Indication: DEPRESSION
     Route: 065
     Dates: start: 20020920
  11. OXYCOCET [Concomitant]
     Indication: HEADACHE
     Dosage: DOSE:1 UNIT(S)
     Route: 065
     Dates: start: 200301
  12. SERC [Concomitant]
     Indication: DIZZINESS
     Route: 065
     Dates: start: 2003
  13. TEMAZEPAM [Concomitant]
     Indication: INSOMNIA
     Route: 065
     Dates: start: 200303, end: 20050922
  14. SANDOMIGRAN DS [Concomitant]
     Indication: HEADACHE
     Dosage: DOSE:1 UNIT(S)
     Route: 065
     Dates: start: 200306
  15. NAPROXEN [Concomitant]
     Indication: ARTHRALGIA
     Route: 065
     Dates: start: 200402, end: 200509
  16. PLAQUENIL [Concomitant]
     Indication: ARTHRALGIA
     Route: 065
     Dates: start: 20040605, end: 20050123
  17. PLAQUENIL [Concomitant]
     Indication: CONNECTIVE TISSUE DISORDER
     Route: 065
     Dates: start: 20040605, end: 20050123
  18. METFORMIN [Concomitant]
     Indication: BLOOD GLUCOSE INCREASED
     Dates: start: 20040927, end: 200410
  19. METFORMIN [Concomitant]
     Indication: BLOOD GLUCOSE INCREASED
     Dates: start: 200410, end: 200503
  20. CO-DIOVAN [Concomitant]
     Indication: HYPERTENSION
     Route: 065
     Dates: start: 20041022, end: 200507
  21. METHOTREXATE [Concomitant]
  22. PLENDIL [Concomitant]
  23. FOLIC ACID [Concomitant]
  24. INDOCID [Concomitant]

REACTIONS (2)
  - Systemic lupus erythematosus [Not Recovered/Not Resolved]
  - Type 2 diabetes mellitus [Not Recovered/Not Resolved]
